FAERS Safety Report 17508481 (Version 1)
Quarter: 2020Q1

REPORT INFORMATION
  Report Type: Spontaneous
  Country: US (occurrence: US)
  Receive Date: 20200306
  Receipt Date: 20200306
  Transmission Date: 20200409
  Serious: No
  Sender: FDA-Public Use
  Company Number: US-SHIRE-US202008614

PATIENT

DRUGS (1)
  1. GATTEX [Suspect]
     Active Substance: TEDUGLUTIDE\WATER
     Indication: SHORT-BOWEL SYNDROME
     Dosage: 1.6 MILLIGRAM/KILOGRAM, 1X/DAY:QD
     Route: 065

REACTIONS (5)
  - Alopecia [Unknown]
  - Hyperhidrosis [Unknown]
  - Weight increased [Unknown]
  - Incorrect dose administered [Unknown]
  - Heart rate increased [Unknown]
